FAERS Safety Report 23139401 (Version 15)
Quarter: 2024Q4

REPORT INFORMATION
  Report Type: Spontaneous
  Country: BE (occurrence: BE)
  Receive Date: 20231102
  Receipt Date: 20241217
  Transmission Date: 20250114
  Serious: Yes (Death, Hospitalization, Other)
  Sender: RANBAXY
  Company Number: BE-SUN PHARMACEUTICAL INDUSTRIES LTD-2023RR-415876

PATIENT
  Age: 85 Year
  Sex: Male

DRUGS (26)
  1. TAMSULOSIN [Suspect]
     Active Substance: TAMSULOSIN
     Indication: Prostatomegaly
     Dosage: 0.4 MILLIGRAM, QD
     Route: 048
  2. BUMETANIDE [Suspect]
     Active Substance: BUMETANIDE
     Indication: Cardiac failure
     Dosage: 1 MILLIGRAM, QD, ONCE A DAY;
     Route: 048
     Dates: start: 20230927, end: 20231004
  3. DAPAGLIFLOZIN [Suspect]
     Active Substance: DAPAGLIFLOZIN
     Indication: Cardiac failure
     Dosage: 10 MILLIGRAM, QD
     Route: 048
     Dates: start: 20230315, end: 20231004
  4. ENTRESTO [Suspect]
     Active Substance: SACUBITRIL\VALSARTAN
     Indication: Product used for unknown indication
     Dosage: UNK
     Route: 065
  5. EDOXABAN TOSYLATE [Suspect]
     Active Substance: EDOXABAN TOSYLATE
     Indication: Thrombosis prophylaxis
     Dosage: 30 MILLIGRAM
     Route: 048
     Dates: start: 20230315, end: 20231004
  6. SPIRONOLACTONE [Suspect]
     Active Substance: SPIRONOLACTONE
     Indication: Product used for unknown indication
     Dosage: UNK
     Route: 065
  7. EDOXABAN [Suspect]
     Active Substance: EDOXABAN
     Indication: Thrombosis prophylaxis
     Dosage: 30 MG, QD
     Route: 048
     Dates: start: 20230315, end: 20231004
  8. ACORAMIDIS [Concomitant]
     Active Substance: ACORAMIDIS
     Indication: Product used for unknown indication
     Dosage: UNK
     Route: 065
     Dates: start: 20220816, end: 20220930
  9. BISOPROLOL [Concomitant]
     Active Substance: BISOPROLOL
     Indication: Product used for unknown indication
     Dosage: FOUR TIMES/DAY
     Route: 065
     Dates: start: 20230426
  10. ENOXAPARIN SODIUM [Concomitant]
     Active Substance: ENOXAPARIN SODIUM
     Indication: Product used for unknown indication
     Dosage: FOUR TIMES/DAY
     Route: 065
     Dates: start: 20231004
  11. CORDARONE [Concomitant]
     Active Substance: AMIODARONE HYDROCHLORIDE
     Indication: Product used for unknown indication
     Dosage: UNK
     Route: 065
  12. Pantomed [Concomitant]
     Indication: Product used for unknown indication
     Dosage: UNK, ONCE A DAY
     Route: 065
  13. SIMVASTATIN [Concomitant]
     Active Substance: SIMVASTATIN
     Indication: Product used for unknown indication
     Dosage: UNK
     Route: 065
  14. 1-alpha Leo (alfacalcidol) [Concomitant]
     Indication: Vitamin D deficiency
     Dosage: 0.25 UG QD PO SINCE 23MAY2023
     Route: 048
     Dates: start: 20230523
  15. Duovent (fenoterol, ipratropium) [Concomitant]
     Indication: Pneumonia
     Dosage: 50/20 UG PER DOSE (0.1 UNIT) FOUR TIMES DAILY (QID)
     Route: 065
     Dates: start: 20230924
  16. SODIUM BICARBONATE [Concomitant]
     Active Substance: SODIUM BICARBONATE
     Indication: Prophylaxis against dehydration
     Dosage: 1 G THRICE DAILY (TID) PO
     Route: 048
     Dates: start: 20230920
  17. ZOLPIDEM [Concomitant]
     Active Substance: ZOLPIDEM TARTRATE
     Indication: Product used for unknown indication
     Dosage: UNK
     Route: 065
  18. DARBEPOETIN ALFA [Concomitant]
     Active Substance: DARBEPOETIN ALFA
     Indication: Product used for unknown indication
     Dosage: UNK
     Route: 065
  19. BISOPROLOL [Concomitant]
     Active Substance: BISOPROLOL
     Indication: Product used for unknown indication
     Dosage: UNK
     Route: 065
     Dates: start: 20240426
  20. ACETAMINOPHEN [Concomitant]
     Active Substance: ACETAMINOPHEN
     Indication: Product used for unknown indication
     Dosage: UNK
     Route: 065
     Dates: start: 20240624
  21. PIPERACILLIN SODIUM\TAZOBACTAM SODIUM [Concomitant]
     Active Substance: PIPERACILLIN SODIUM\TAZOBACTAM SODIUM
     Indication: Product used for unknown indication
     Dosage: UNK
     Route: 065
  22. ULTRA K [Concomitant]
     Indication: Product used for unknown indication
     Dosage: UNK
     Route: 065
     Dates: start: 20240629
  23. TAMSULOSIN [Concomitant]
     Active Substance: TAMSULOSIN
     Indication: Product used for unknown indication
     Dosage: UNK
     Route: 065
  24. MORPHINE [Concomitant]
     Active Substance: MORPHINE
     Indication: Product used for unknown indication
     Dosage: UNK
     Route: 065
     Dates: start: 20240701
  25. SCOPOLAMINE [Concomitant]
     Active Substance: SCOPOLAMINE
     Indication: Product used for unknown indication
     Dosage: UNK
     Route: 065
     Dates: start: 20240703
  26. FENOTEROL [Concomitant]
     Active Substance: FENOTEROL
     Indication: Product used for unknown indication
     Dosage: UNK
     Route: 065

REACTIONS (23)
  - Acute kidney injury [Recovered/Resolved]
  - Hypotension [Unknown]
  - Cardiomegaly [Unknown]
  - Loss of consciousness [Unknown]
  - Dehydration [Recovered/Resolved]
  - Pneumonia [Recovered/Resolved]
  - Dizziness [Unknown]
  - Cardiac failure [Recovered/Resolved]
  - Atrioventricular block [Recovered/Resolved]
  - Presyncope [Unknown]
  - Wrong technique in product usage process [Unknown]
  - Atrioventricular block complete [Recovered/Resolved]
  - Cardiac failure acute [Fatal]
  - Atrial fibrillation [Recovered/Resolved]
  - Pneumonia [Fatal]
  - Dizziness [Unknown]
  - Cardiac amyloidosis [Unknown]
  - Liver function test abnormal [Unknown]
  - Haematuria [Unknown]
  - Wrong technique in product usage process [Unknown]
  - Diastolic dysfunction [Unknown]
  - Ejection fraction decreased [Unknown]
  - Presyncope [Unknown]

NARRATIVE: CASE EVENT DATE: 20230227
